FAERS Safety Report 17758343 (Version 3)
Quarter: 2020Q4

REPORT INFORMATION
  Report Type: Report from Study
  Country: US (occurrence: US)
  Receive Date: 20200507
  Receipt Date: 20201128
  Transmission Date: 20210113
  Serious: No
  Sender: FDA-Public Use
  Company Number: NVSC2020US124630

PATIENT
  Sex: Male

DRUGS (1)
  1. ENTRESTO [Suspect]
     Active Substance: SACUBITRIL\VALSARTAN
     Indication: CARDIAC FAILURE
     Dosage: UNK
     Route: 065
     Dates: start: 2019

REACTIONS (11)
  - Gait disturbance [Unknown]
  - Hypotension [Unknown]
  - Swelling [Unknown]
  - Dehydration [Unknown]
  - Dry eye [Unknown]
  - Weight decreased [Recovering/Resolving]
  - Fluid retention [Unknown]
  - Blood glucose increased [Unknown]
  - Dry mouth [Unknown]
  - Thirst [Unknown]
  - Tendon injury [Unknown]
